FAERS Safety Report 16674739 (Version 1)
Quarter: 2019Q3

REPORT INFORMATION
  Report Type: Spontaneous
  Country: FR (occurrence: FR)
  Receive Date: 20190806
  Receipt Date: 20190806
  Transmission Date: 20191004
  Serious: Yes (Hospitalization)
  Sender: FDA-Public Use
  Company Number: FR-PFIZER INC-2019333844

PATIENT
  Age: 83 Year
  Sex: Female
  Weight: 108 kg

DRUGS (2)
  1. PYOSTACINE [Suspect]
     Active Substance: PRISTINAMYCIN
     Indication: ERYTHEMA
     Dosage: 6 DF, 1X/DAY
     Route: 048
     Dates: start: 20190707, end: 20190709
  2. DALACINE [Suspect]
     Active Substance: CLINDAMYCIN
     Indication: ERYTHEMA
     Dosage: 4 DF, 1X/DAY
     Route: 042
     Dates: start: 20190706, end: 20190707

REACTIONS (3)
  - Rash macular [Recovering/Resolving]
  - Off label use [Unknown]
  - Product use in unapproved indication [Unknown]

NARRATIVE: CASE EVENT DATE: 20190706
